FAERS Safety Report 4473876-X (Version None)
Quarter: 2004Q4

REPORT INFORMATION
  Report Type: 
  Country: None (occurrence: None)
  Receive Date: 20041008
  Receipt Date: 20041008
  Transmission Date: 20050328
  Serious: Yes (Other)
  Sender: FDA-Public Use
  Company Number: None

PATIENT
  Age: 26 Year
  Sex: Male
  Weight: 55 kg

DRUGS (2)
  1. SEROQUEL [Suspect]
     Indication: AFFECTIVE DISORDER
     Dosage: 1000 MG PO
     Route: 048
     Dates: start: 20040401
  2. SEROQUEL [Suspect]
     Indication: BIPOLAR DISORDER
     Dosage: 1000 MG PO
     Route: 048
     Dates: start: 20040401

REACTIONS (2)
  - DROOLING [None]
  - SEXUAL DYSFUNCTION [None]
